FAERS Safety Report 15622187 (Version 1)
Quarter: 2018Q4

REPORT INFORMATION
  Report Type: Spontaneous
  Country: PL (occurrence: PL)
  Receive Date: 20181115
  Receipt Date: 20181115
  Transmission Date: 20190205
  Serious: Yes (Life-Threatening)
  Sender: FDA-Public Use
  Company Number: PL-BAYER-2018-205338

PATIENT
  Age: 45 Year
  Sex: Female
  Weight: 65 kg

DRUGS (1)
  1. QLAIRA [Suspect]
     Active Substance: DIENOGEST\ESTRADIOL VALERATE
     Indication: MENOMETRORRHAGIA
     Dosage: UNK
     Route: 048
     Dates: start: 20181102, end: 20181103

REACTIONS (8)
  - Nausea [Recovering/Resolving]
  - Feeling abnormal [None]
  - Headache [Recovering/Resolving]
  - Drug ineffective [None]
  - Paraesthesia [Recovering/Resolving]
  - Discomfort [Recovering/Resolving]
  - Dizziness [Recovering/Resolving]
  - Chest discomfort [Recovering/Resolving]

NARRATIVE: CASE EVENT DATE: 20181102
